FAERS Safety Report 5150218-8 (Version None)
Quarter: 2006Q4

REPORT INFORMATION
  Report Type: 
  Country: None (occurrence: None)
  Receive Date: 20061109
  Receipt Date: 20061109
  Transmission Date: 20070319
  Serious: Yes (Hospitalization)
  Sender: FDA-Public Use
  Company Number: None

PATIENT
  Age: 76 Year
  Sex: Female
  Weight: 44 kg

DRUGS (10)
  1. HEPARIN [Suspect]
     Indication: ATRIAL FIBRILLATION
     Dosage: 25,000 UNITS/250 ML TITRATE IV
     Route: 042
     Dates: start: 20060904, end: 20060909
  2. COUMADIN [Suspect]
     Dosage: 10 MG ONCE PO
     Route: 048
     Dates: start: 20060904, end: 20060916
  3. NORVASC [Concomitant]
  4. DIGOXIN [Concomitant]
  5. ASPIRIN [Concomitant]
  6. NEXIUM [Concomitant]
  7. COREG [Concomitant]
  8. ALTACE [Concomitant]
  9. PLAVIX [Concomitant]
  10. ZOCOR [Concomitant]

REACTIONS (1)
  - HAEMATOMA [None]
